FAERS Safety Report 21036381 (Version 1)
Quarter: 2022Q3

REPORT INFORMATION
  Report Type: Spontaneous
  Country: SI (occurrence: SI)
  Receive Date: 20220702
  Receipt Date: 20220702
  Transmission Date: 20221027
  Serious: Yes (Hospitalization, Other)
  Sender: FDA-Public Use
  Company Number: SI-BAYER-2022A089442

PATIENT
  Sex: Male
  Weight: 49 kg

DRUGS (1)
  1. XARELTO [Suspect]
     Active Substance: RIVAROXABAN
     Indication: Product used for unknown indication
     Dosage: 20 MG, QD
     Route: 048
     Dates: start: 2014

REACTIONS (8)
  - Normocytic anaemia [Recovered/Resolved]
  - Cardiac disorder [Unknown]
  - Primary amyloidosis [Unknown]
  - Haemoglobin decreased [Unknown]
  - Respiratory tract infection [Unknown]
  - Asthenia [Unknown]
  - Cholecystitis chronic [Unknown]
  - Chemotherapy [Unknown]

NARRATIVE: CASE EVENT DATE: 20220301
